FAERS Safety Report 8487354-4 (Version None)
Quarter: 2012Q2

REPORT INFORMATION
  Report Type: 
  Country: None (occurrence: None)
  Receive Date: 20120628
  Receipt Date: 20120628
  Transmission Date: 20120825
  Serious: Yes (Disabling)
  Sender: FDA-Public Use
  Company Number: None

PATIENT
  Sex: Male
  Weight: 54.4316 kg

DRUGS (1)
  1. AVADART BY DR. WILLSON [Suspect]
     Indication: PROSTATIC DISORDER
     Dosage: DAILY
     Dates: start: 20110901, end: 20111001

REACTIONS (2)
  - PAIN IN EXTREMITY [None]
  - GROIN PAIN [None]
